FAERS Safety Report 17423978 (Version 1)
Quarter: 2020Q1

REPORT INFORMATION
  Report Type: Spontaneous
  Country: IT (occurrence: IT)
  Receive Date: 20200217
  Receipt Date: 20200217
  Transmission Date: 20200409
  Serious: Yes (Life-Threatening)
  Sender: FDA-Public Use
  Company Number: IT-HIKMA PHARMACEUTICALS USA INC.-IT-H14001-20-50471

PATIENT
  Age: 56 Year
  Sex: Male
  Weight: 80 kg

DRUGS (4)
  1. ROCURONIO HIKMA [Suspect]
     Active Substance: ROCURONIUM BROMIDE
     Indication: NEUROMUSCULAR BLOCKING THERAPY
     Route: 042
     Dates: start: 20191230, end: 20191230
  2. PROPOFOL. [Concomitant]
     Active Substance: PROPOFOL
     Indication: PRODUCT USED FOR UNKNOWN INDICATION
  3. REMIFENTANIL [Concomitant]
     Active Substance: REMIFENTANIL
     Indication: PRODUCT USED FOR UNKNOWN INDICATION
  4. TRANEXAMIC ACID. [Concomitant]
     Active Substance: TRANEXAMIC ACID
     Indication: PRODUCT USED FOR UNKNOWN INDICATION

REACTIONS (2)
  - Drug ineffective [Recovered/Resolved]
  - Premature recovery from anaesthesia [Recovered/Resolved]

NARRATIVE: CASE EVENT DATE: 20191230
